FAERS Safety Report 8957537 (Version 1)
Quarter: 2012Q4

REPORT INFORMATION
  Report Type: 
  Country: US (occurrence: US)
  Receive Date: 20121210
  Receipt Date: 20121210
  Transmission Date: 20130627
  Serious: Yes (Other)
  Sender: FDA-Public Use
  Company Number: US-PFIZER INC-2012305569

PATIENT
  Age: 54 Year
  Sex: Female

DRUGS (12)
  1. GLUCOTROL XL [Suspect]
     Dosage: 10 mg, 1x/day
     Route: 048
  2. ACCUPRIL [Suspect]
     Dosage: 20 mg, 1x/day
     Route: 048
  3. NORVASC [Suspect]
     Dosage: 10 mg, 1x/day
     Route: 048
  4. ZYRTEC [Suspect]
     Dosage: 10 mg, 1x/day
  5. TYLENOL [Suspect]
     Indication: ARTHRITIS
     Dosage: 650 mg, UNK (1 tablet by Oral route every 8 hours (not to exceed 4000 mglday))
     Route: 048
  6. CLARINEX [Concomitant]
     Dosage: UNK
  7. SPORANOX [Concomitant]
     Dosage: 100 mg, 2x/day (2 capsule by Oral route 2 times per day with food Take for One Week)
     Route: 048
  8. ELOCON [Concomitant]
     Dosage: 0.1 %, UNK (1 app by Topical route 1 time per day)
     Route: 061
  9. CYMBALTA [Concomitant]
     Dosage: 30 mg, (1-2 capsule by Oral route 1 time per day)
     Route: 048
  10. JANUVIA [Concomitant]
     Dosage: 100 mg, 1x/day
     Route: 048
  11. GLYBURIDE [Concomitant]
     Dosage: 5 mg, 2x/day
     Route: 048
  12. METFORMIN [Concomitant]
     Dosage: 500 mg, 2x/day
     Route: 048

REACTIONS (12)
  - Type 2 diabetes mellitus [Unknown]
  - Essential hypertension [Unknown]
  - Myalgia [Unknown]
  - Myositis [Unknown]
  - Onychomycosis [Unknown]
  - Pain in extremity [Unknown]
  - Arthralgia [Unknown]
  - Osteoarthritis [Unknown]
  - Hypoaesthesia [Unknown]
  - Paraesthesia [Unknown]
  - Rhinitis allergic [Unknown]
  - Cough [Unknown]
